FAERS Safety Report 7966762-1 (Version None)
Quarter: 2011Q4

REPORT INFORMATION
  Report Type: 
  Country: None (occurrence: None)
  Receive Date: 20111209
  Receipt Date: 20111206
  Transmission Date: 20120403
  Serious: No
  Sender: FDA-Public Use
  Company Number: US-BIOGENIDEC-2011BI046235

PATIENT
  Age: 24 Year
  Sex: Female

DRUGS (1)
  1. TYSABRI [Suspect]
     Indication: MULTIPLE SCLEROSIS
     Route: 042
     Dates: start: 20110620

REACTIONS (5)
  - GASTROENTERITIS VIRAL [None]
  - OROPHARYNGEAL PAIN [None]
  - NASAL CONGESTION [None]
  - COUGH [None]
  - URINARY TRACT INFECTION [None]
